FAERS Safety Report 4341627-5 (Version None)
Quarter: 2004Q2

REPORT INFORMATION
  Report Type: 
  Country: None (occurrence: None)
  Receive Date: 20040415
  Receipt Date: 20040406
  Transmission Date: 20050107
  Serious: Yes (Death)
  Sender: FDA-Public Use
  Company Number: 163-20785-04030555

PATIENT
  Age: 43 Year
  Sex: Male

DRUGS (2)
  1. THALOMID [Suspect]
     Indication: RENAL CELL CARCINOMA STAGE UNSPECIFIED
     Dosage: 400 MG, DAILY, ORAL
     Route: 048
     Dates: start: 20030524
  2. THALOMID [Suspect]

REACTIONS (2)
  - MALIGNANT NEOPLASM PROGRESSION [None]
  - RENAL CELL CARCINOMA STAGE UNSPECIFIED [None]
